FAERS Safety Report 20250474 (Version 1)
Quarter: 2021Q4

REPORT INFORMATION
  Report Type: Spontaneous
  Country: US (occurrence: US)
  Receive Date: 20211229
  Receipt Date: 20211229
  Transmission Date: 20220303
  Serious: Yes (Other)
  Sender: FDA-Public Use
  Company Number: US-PURDUE-USA-2020-0217772

PATIENT
  Sex: Male

DRUGS (22)
  1. OXYCONTIN [Suspect]
     Active Substance: OXYCODONE HYDROCHLORIDE
     Indication: Product used for unknown indication
     Dosage: 60 MG, Q12H, TOTAL 30 TABLETS IN 15 DAYS
     Route: 048
     Dates: start: 20091105
  2. OXYCONTIN [Suspect]
     Active Substance: OXYCODONE HYDROCHLORIDE
     Dosage: 60 MG, BID, TOTAL 60 TABLETS IN 30 DAYS
     Route: 048
     Dates: start: 20090804
  3. OXYCONTIN [Suspect]
     Active Substance: OXYCODONE HYDROCHLORIDE
     Dosage: 40 MG, QD PRN, TOTAL 30 TABLETS IN 30 DAYS
     Route: 048
     Dates: start: 20090804
  4. OXYCONTIN [Suspect]
     Active Substance: OXYCODONE HYDROCHLORIDE
     Dosage: 20 MG, TID
     Route: 048
     Dates: start: 20081113
  5. OXYCONTIN [Suspect]
     Active Substance: OXYCODONE HYDROCHLORIDE
     Dosage: 20 MG, BID
     Route: 048
  6. OXYCONTIN [Suspect]
     Active Substance: OXYCODONE HYDROCHLORIDE
     Dosage: 20 MG, QD PRN
     Route: 048
  7. OXYCONTIN [Suspect]
     Active Substance: OXYCODONE HYDROCHLORIDE
     Dosage: 40 MG, BID, TOTAL 60 TABLETS IN 30 DAYS
     Route: 048
     Dates: start: 20081209
  8. OXYCONTIN [Suspect]
     Active Substance: OXYCODONE HYDROCHLORIDE
     Dosage: 40 MG, TID, TOTAL 90 TABLETS IN 30 DAYS
     Route: 048
     Dates: start: 20090106
  9. OXYCONTIN [Suspect]
     Active Substance: OXYCODONE HYDROCHLORIDE
     Dosage: 40 MG, DAILY, TOTAL 30 TABLETS IN 30 DAYS
     Route: 048
     Dates: start: 20090304
  10. OXYCONTIN [Suspect]
     Active Substance: OXYCODONE HYDROCHLORIDE
     Dosage: 60 MG, Q12H, TOTAL 60 TABLETS IN 30 DAYS
     Route: 048
     Dates: start: 20090304
  11. OXYCONTIN [Suspect]
     Active Substance: OXYCODONE HYDROCHLORIDE
     Dosage: 40 MG, BID, TOTAL 45 TABLETS IN 22 DAYS
     Route: 048
     Dates: start: 20090601
  12. OXYCONTIN [Suspect]
     Active Substance: OXYCODONE HYDROCHLORIDE
     Dosage: 60 MG, TID, TOTAL 90 TABLETS IN 30 DAYS
     Route: 048
     Dates: start: 20090601
  13. OXYCODONE HYDROCHLORIDE [Suspect]
     Active Substance: OXYCODONE HYDROCHLORIDE
     Indication: Product used for unknown indication
     Dosage: UNKNOWN
     Route: 048
  14. OXYCODONE HYDROCHLORIDE [Suspect]
     Active Substance: OXYCODONE HYDROCHLORIDE
     Indication: Product used for unknown indication
     Dosage: 40 MG, BID, TOTAL 60 TABLETS IN 30 DAYS
     Route: 048
     Dates: start: 20080424
  15. OXYCODONE HYDROCHLORIDE [Suspect]
     Active Substance: OXYCODONE HYDROCHLORIDE
     Dosage: 40 MG, TID, TOTAL 90 TABLETS IN 30 DAYS
     Route: 048
     Dates: start: 20080522
  16. OXYCODONE HYDROCHLORIDE [Suspect]
     Active Substance: OXYCODONE HYDROCHLORIDE
     Indication: Product used for unknown indication
     Dosage: UNKNOWN
     Route: 065
  17. ACETAMINOPHEN\OXYCODONE HYDROCHLORIDE [Suspect]
     Active Substance: ACETAMINOPHEN\OXYCODONE HYDROCHLORIDE
     Indication: Product used for unknown indication
     Dosage: UNKNOWN
     Route: 048
  18. BUTRANS [Suspect]
     Active Substance: BUPRENORPHINE
     Indication: Product used for unknown indication
     Dosage: 10 MCG/HR, WEEKLY, TOTAL 4 PATCHES IN 28 DAYS
     Route: 062
     Dates: start: 20110607
  19. BUTRANS [Suspect]
     Active Substance: BUPRENORPHINE
     Dosage: 20 MCG/HR, WEEKLY, TOTAL 2 PATCHES IN 14 DAYS
     Route: 062
     Dates: start: 20110621
  20. HYDROCODONE BITARTRATE AND ACETAMINOPHEN [Suspect]
     Active Substance: ACETAMINOPHEN\HYDROCODONE BITARTRATE
     Indication: Product used for unknown indication
     Dosage: UNKNOWN
     Route: 048
  21. HYDROCODONE BITARTRATE [Suspect]
     Active Substance: HYDROCODONE BITARTRATE
     Indication: Product used for unknown indication
     Dosage: UNKNOWN
     Route: 065
  22. VICODIN [Suspect]
     Active Substance: ACETAMINOPHEN\HYDROCODONE BITARTRATE
     Indication: Product used for unknown indication
     Dosage: UNKNOWN
     Route: 065

REACTIONS (3)
  - Overdose [Unknown]
  - Drug dependence [Unknown]
  - Emotional distress [Unknown]
